FAERS Safety Report 9188243 (Version 2)
Quarter: 2013Q2

REPORT INFORMATION
  Report Type: Report from Study
  Country: US (occurrence: US)
  Receive Date: 20130325
  Receipt Date: 20130408
  Transmission Date: 20140414
  Serious: Yes (Hospitalization, Other)
  Sender: FDA-Public Use
  Company Number: US-ASTELLAS-2013EU001666

PATIENT
  Age: 70 Year
  Sex: Male
  Weight: 110 kg

DRUGS (28)
  1. BLINDED ENZALUTAMIDE [Suspect]
     Indication: PROSTATE CANCER METASTATIC
     Dosage: 160 MG, UID/QD
     Route: 048
     Dates: start: 20101013, end: 20130319
  2. LUPRON [Concomitant]
     Indication: PROSTATE CANCER
     Dosage: 0.25 MG, OTHER
     Route: 058
     Dates: start: 20091222
  3. CRANBERRY                          /01512301/ [Concomitant]
     Indication: PROPHYLAXIS
     Dosage: 2 DF, UID/QD
     Route: 048
     Dates: start: 2009
  4. MULTIVITAMIN                       /00097801/ [Concomitant]
     Indication: PROPHYLAXIS
     Dosage: 1 DF, UID/QD
     Route: 048
     Dates: start: 2007
  5. FISH OIL [Concomitant]
     Indication: PROPHYLAXIS
     Dosage: 1000 MG, UID/QD
     Route: 048
     Dates: start: 2009
  6. IBUPROFEN [Concomitant]
     Indication: ARTHRITIS
     Dosage: 400 MG, UID/QD
     Route: 048
     Dates: start: 2007
  7. ADVIL PM                           /06117501/ [Concomitant]
     Indication: ARTHRITIS
     Dosage: 400 MG, UID/QD
     Route: 048
     Dates: start: 2007
  8. CALCIUM [Concomitant]
     Indication: BONE DISORDER
     Dosage: 1000 MG, UID/QD
     Route: 048
     Dates: start: 200912
  9. ALLEGRA-D [Concomitant]
     Indication: HYPERSENSITIVITY
     Dosage: 60 MG, PRN
     Route: 048
     Dates: start: 20101019
  10. CLARITIN                           /00917501/ [Concomitant]
     Indication: NASAL CONGESTION
     Dosage: UNK MG, PRN
     Route: 048
     Dates: start: 20101123
  11. COMPAZINE                          /00013302/ [Concomitant]
     Indication: NAUSEA
     Dosage: 10 MG, PRN
     Route: 048
     Dates: start: 20110202
  12. PHENERGAN                          /00033001/ [Concomitant]
     Indication: NAUSEA
     Dosage: 25 MG, PRN
     Route: 048
     Dates: start: 20110713
  13. FLORINEF [Concomitant]
     Indication: ORTHOSTATIC HYPOTENSION
     Dosage: 0.1 MG, UID/QD
     Route: 048
     Dates: start: 20110720
  14. ANUSOL-HC                          /00028604/ [Concomitant]
     Indication: HAEMORRHOIDS
     Dosage: 25 MG, BID
     Route: 054
     Dates: start: 20110718
  15. PROSCAR [Concomitant]
     Indication: BENIGN PROSTATIC HYPERPLASIA
     Dosage: 5 MG, UID/QD
     Route: 048
     Dates: start: 20110706
  16. MIDODRINE [Concomitant]
     Indication: ORTHOSTATIC HYPOTENSION
     Dosage: 2.5 MG, TID
     Route: 048
     Dates: start: 20110720
  17. COLACE [Concomitant]
     Indication: CONSTIPATION
     Dosage: 100 MG, BID
     Route: 048
     Dates: start: 20110720
  18. MIRALAX                            /00754501/ [Concomitant]
     Indication: CONSTIPATION
     Dosage: 17 G, UID/QD
     Route: 048
     Dates: start: 20110729
  19. NODOZ [Concomitant]
     Indication: ORTHOSTATIC HYPOTENSION
     Dosage: 1 DF, BID
     Route: 048
     Dates: start: 20110915
  20. AVODART [Concomitant]
     Indication: BENIGN PROSTATIC HYPERPLASIA
     Dosage: 0.5 MG, UID/QD
     Route: 048
     Dates: start: 20110729
  21. CELEXA                             /00582602/ [Concomitant]
     Indication: DEPRESSION
     Dosage: 40 MG, UID/QD
     Route: 048
     Dates: start: 20120516
  22. DEXAMETHASONE [Concomitant]
     Indication: SPINAL CORD COMPRESSION
     Dosage: 8 MG, OTHER
     Route: 048
     Dates: start: 20130201
  23. CIPRO                              /00697201/ [Concomitant]
     Indication: URINARY TRACT INFECTION
     Dosage: 500 MG, BID
     Route: 048
     Dates: start: 20130128
  24. VALTREX [Concomitant]
     Indication: HERPES ZOSTER
     Dosage: 500 MG, BID
     Route: 048
     Dates: start: 20130204, end: 20130214
  25. ACYCLOVIR                          /00587301/ [Concomitant]
     Indication: HERPES ZOSTER
     Dosage: 1000 MG, UNKNOWN/D
     Route: 048
     Dates: start: 20130214, end: 20130216
  26. VICODIN [Concomitant]
     Dosage: UNK
     Route: 065
  27. VITAMIN D /00107901/ [Concomitant]
     Dosage: UNK
     Route: 065
  28. OMEPRAZOLE [Concomitant]
     Dosage: UNK
     Route: 065

REACTIONS (2)
  - Osteosarcoma [Not Recovered/Not Resolved]
  - Spinal cord compression [Recovered/Resolved]
